FAERS Safety Report 10043670 (Version 1)
Quarter: 2014Q1

REPORT INFORMATION
  Report Type: Spontaneous
  Country: ES (occurrence: ES)
  Receive Date: 20140328
  Receipt Date: 20140328
  Transmission Date: 20141002
  Serious: Yes (Other)
  Sender: FDA-Public Use
  Company Number: ES-JNJFOC-20140313055

PATIENT
  Age: 36 Year
  Sex: Male

DRUGS (2)
  1. STELARA [Suspect]
     Indication: PSORIASIS
     Route: 058
     Dates: start: 20100210
  2. FLUCONAZOLE [Concomitant]
     Indication: OPPORTUNISTIC INFECTION
     Route: 065

REACTIONS (1)
  - Choroiditis [Not Recovered/Not Resolved]
